FAERS Safety Report 10234435 (Version 2)
Quarter: 2014Q2

REPORT INFORMATION
  Report Type: Spontaneous
  Country: TR (occurrence: TR)
  Receive Date: 20140613
  Receipt Date: 20140613
  Transmission Date: 20141212
  Serious: Yes (Other)
  Sender: FDA-Public Use
  Company Number: PHHY2014TR067541

PATIENT
  Age: 60 Year
  Sex: Female

DRUGS (6)
  1. METHOTREXATE [Suspect]
     Indication: RHEUMATOID ARTHRITIS
     Dosage: 112.5 MG (CUMULATIVE DOSE)
     Route: 048
  2. METHOTREXATE [Suspect]
     Dosage: 7.5 MG QD, FOR 15 DAYS
     Route: 048
  3. NAPROXEN [Concomitant]
     Indication: RHEUMATOID ARTHRITIS
  4. NSAID^S [Concomitant]
     Indication: RHEUMATOID ARTHRITIS
  5. CITALOPRAM [Concomitant]
  6. VALSARTAN/HYDROCHLOROTHIAZIDE [Concomitant]

REACTIONS (16)
  - Pseudomonas test positive [Recovering/Resolving]
  - Pancytopenia [Recovering/Resolving]
  - Febrile neutropenia [Recovering/Resolving]
  - Bone marrow failure [Recovering/Resolving]
  - Aplastic anaemia [Recovering/Resolving]
  - Eosinophil count increased [Recovering/Resolving]
  - Asthenia [Recovering/Resolving]
  - Diarrhoea [Recovering/Resolving]
  - Stomatitis [Recovering/Resolving]
  - Pyrexia [Recovering/Resolving]
  - Haematuria [Recovering/Resolving]
  - Renal failure [Recovering/Resolving]
  - Nausea [Recovering/Resolving]
  - Mucosal inflammation [Recovering/Resolving]
  - Gastrointestinal injury [Recovering/Resolving]
  - Medication error [Unknown]
